FAERS Safety Report 10060894 (Version 1)
Quarter: 2014Q2

REPORT INFORMATION
  Report Type: Spontaneous
  Country: KR (occurrence: KR)
  Receive Date: 20140404
  Receipt Date: 20140404
  Transmission Date: 20141212
  Serious: Yes (Hospitalization, Other)
  Sender: FDA-Public Use
  Company Number: KR-GILEAD-2014-0098485

PATIENT
  Age: 43 Year
  Sex: Male

DRUGS (2)
  1. ADEFOVIR DIPIVOXIL [Suspect]
     Indication: PRODUCT USED FOR UNKNOWN INDICATION
     Dosage: 10 MG, UNK
     Route: 065
  2. ENTECAVIR [Concomitant]
     Dosage: UNK

REACTIONS (14)
  - Osteoporosis [Unknown]
  - Bone density decreased [Unknown]
  - Blood alkaline phosphatase increased [Unknown]
  - Glycosuria [Unknown]
  - Proteinuria [Unknown]
  - Arthralgia [Unknown]
  - Myalgia [Unknown]
  - Back pain [Unknown]
  - Asthenia [Unknown]
  - Osteomalacia [Recovering/Resolving]
  - Bone pain [Unknown]
  - Bone pain [Unknown]
  - Blood creatinine increased [Unknown]
  - Hypophosphataemia [Unknown]
